FAERS Safety Report 10610610 (Version 3)
Quarter: 2015Q4

REPORT INFORMATION
  Report Type: Spontaneous
  Country: US (occurrence: US)
  Receive Date: 20141126
  Receipt Date: 20151125
  Transmission Date: 20160304
  Serious: Yes (Death)
  Sender: FDA-Public Use
  Company Number: US-MALLINCKRODT-T201403422

PATIENT
  Sex: Female
  Weight: 77 kg

DRUGS (15)
  1. ULTRAM [Concomitant]
     Active Substance: TRAMADOL HYDROCHLORIDE
     Dosage: 25 MG, EVERY MORNING
     Route: 048
  2. TYLENOL [Concomitant]
     Active Substance: ACETAMINOPHEN
     Dosage: 650 MG, TID
     Route: 048
  3. NEURONTIN [Concomitant]
     Active Substance: GABAPENTIN
     Dosage: 200 MG, BID
     Route: 048
  4. PROTONIX [Concomitant]
     Active Substance: PANTOPRAZOLE SODIUM
     Dosage: 40 MG, QD
     Route: 048
  5. MULTIVITAMIN [Concomitant]
     Active Substance: VITAMINS
     Dosage: 1 TABLET, DAILY
     Route: 048
  6. LEVOTHYROXINE. [Concomitant]
     Active Substance: LEVOTHYROXINE
     Dosage: 88 MCG; 1 TABLET DAILY
     Route: 048
  7. KLOR-CON [Concomitant]
     Active Substance: POTASSIUM CHLORIDE
     Dosage: 40 MG, QD
     Route: 048
  8. ZOLOFT [Concomitant]
     Active Substance: SERTRALINE HYDROCHLORIDE
     Dosage: 25 MG, QD
     Route: 048
  9. VITAMIN C [Concomitant]
     Active Substance: ASCORBIC ACID
     Dosage: 1 AT BED TIME
  10. ARICEPT [Concomitant]
     Active Substance: DONEPEZIL HYDROCHLORIDE
     Dosage: 1 TABLET AT BED TIME
     Route: 048
  11. REMERON [Concomitant]
     Active Substance: MIRTAZAPINE
     Dosage: 15 MG, AT BED TIME
  12. VITAMIN B12 [Concomitant]
     Active Substance: CYANOCOBALAMIN
     Dosage: INJECT 1 ML AS DIRECTED
  13. MIRALAX [Concomitant]
     Active Substance: POLYETHYLENE GLYCOL 3350
     Dosage: 17 G, QD
     Route: 048
  14. GABLOFEN [Suspect]
     Active Substance: BACLOFEN
     Indication: MUSCLE SPASTICITY
     Dosage: 220.0 DAILY DOSE
     Route: 037
  15. ZOLOFT [Concomitant]
     Active Substance: SERTRALINE HYDROCHLORIDE
     Dosage: 50 MG, QD
     Route: 048

REACTIONS (1)
  - Death [Fatal]

NARRATIVE: CASE EVENT DATE: 2014
